FAERS Safety Report 24667591 (Version 1)
Quarter: 2024Q4

REPORT INFORMATION
  Report Type: Report from Study
  Country: US (occurrence: US)
  Receive Date: 20241126
  Receipt Date: 20241126
  Transmission Date: 20250115
  Serious: Yes (Other)
  Sender: ABBVIE
  Company Number: US-ABBVIE-6015477

PATIENT
  Sex: Female

DRUGS (1)
  1. SKYRIZI [Suspect]
     Active Substance: RISANKIZUMAB-RZAA
     Indication: Product used for unknown indication
     Route: 058

REACTIONS (7)
  - Breast cancer [Unknown]
  - Sepsis [Unknown]
  - Skin exfoliation [Unknown]
  - Illness [Unknown]
  - Stress [Unknown]
  - Condition aggravated [Unknown]
  - Skin haemorrhage [Unknown]
